FAERS Safety Report 13038743 (Version 2)
Quarter: 2024Q2

REPORT INFORMATION
  Report Type: Spontaneous
  Country: GB (occurrence: GB)
  Receive Date: 20161219
  Receipt Date: 20240412
  Transmission Date: 20240715
  Serious: Yes (Hospitalization, Other)
  Sender: FDA-Public Use
  Company Number: GB-ACCORD-046662

PATIENT
  Age: 40 Year
  Sex: Male

DRUGS (4)
  1. TACROLIMUS [Suspect]
     Active Substance: TACROLIMUS
     Indication: Renal and pancreas transplant
     Dosage: TARGET TROUGH LEVEL 10-12 NG/ML
  2. MYCOPHENOLATE MOFETIL [Suspect]
     Active Substance: MYCOPHENOLATE MOFETIL
     Indication: Renal and pancreas transplant
  3. PREDNISONE [Suspect]
     Active Substance: PREDNISONE
     Indication: Renal and pancreas transplant
     Dosage: STARTED WITH 15 MG OD
  4. LAPINE T-LYMPHOCYTE IMMUNE GLOBULIN [Concomitant]
     Active Substance: LAPINE T-LYMPHOCYTE IMMUNE GLOBULIN
     Dosage: TOTAL DOSE: 550 MG

REACTIONS (1)
  - Mycobacterium chelonae infection [Recovering/Resolving]
